FAERS Safety Report 7905178-0 (Version None)
Quarter: 2011Q4

REPORT INFORMATION
  Report Type: 
  Country: None (occurrence: None)
  Receive Date: 20111109
  Receipt Date: 20111101
  Transmission Date: 20120403
  Serious: Yes (Other)
  Sender: FDA-Public Use
  Company Number: US-ASTRAZENECA-2011SE66178

PATIENT
  Age: 70 Year
  Sex: Female
  Weight: 115.2 kg

DRUGS (2)
  1. VERAPAMIL [Concomitant]
     Indication: HEART RATE ABNORMAL
     Route: 048
  2. SYMBICORT [Suspect]
     Indication: ASTHMA
     Dosage: 2 PUFFS TWICE A DAY
     Route: 055

REACTIONS (2)
  - INAPPROPRIATE SCHEDULE OF DRUG ADMINISTRATION [None]
  - BREAST CANCER [None]
